FAERS Safety Report 5194376-8 (Version None)
Quarter: 2006Q4

REPORT INFORMATION
  Report Type: 
  Country: None (occurrence: None)
  Receive Date: 20061228
  Receipt Date: 20061219
  Transmission Date: 20070319
  Serious: Yes (Death)
  Sender: FDA-Public Use
  Company Number: PT-PFIZER INC-2006154748

PATIENT
  Sex: Female
  Weight: 60 kg

DRUGS (6)
  1. SU-011,248 [Suspect]
     Indication: RENAL CELL CARCINOMA STAGE UNSPECIFIED
     Route: 048
  2. OMEPRAZOLE [Concomitant]
  3. IBANDRONATE SODIUM [Concomitant]
  4. PREDNISOLONE [Concomitant]
  5. AMITRIPTYLINE HCL [Concomitant]
  6. PREGABALIN [Concomitant]

REACTIONS (1)
  - DEATH [None]
